FAERS Safety Report 17028332 (Version 6)
Quarter: 2020Q1

REPORT INFORMATION
  Report Type: Spontaneous
  Country: US (occurrence: US)
  Receive Date: 20191113
  Receipt Date: 20200207
  Transmission Date: 20200409
  Serious: Yes (Death, Hospitalization, Other)
  Sender: FDA-Public Use
  Company Number: US-ACTELION-A-US2019-197848

PATIENT
  Age: 43 Year
  Sex: Female
  Weight: 54.88 kg

DRUGS (14)
  1. ADCIRCA [Concomitant]
     Active Substance: TADALAFIL
  2. LORAZEPAM. [Concomitant]
     Active Substance: LORAZEPAM
     Dosage: 0.5 MG, PRN
     Dates: start: 20200116, end: 20200123
  3. ADEMPAS [Concomitant]
     Active Substance: RIOCIGUAT
     Dosage: 1 MG, TID
     Route: 048
     Dates: end: 20200123
  4. BUMEX [Concomitant]
     Active Substance: BUMETANIDE
     Dosage: 5 MG, BID
     Route: 048
     Dates: start: 20200121, end: 20200123
  5. OPSUMIT [Suspect]
     Active Substance: MACITENTAN
     Indication: PULMONARY ARTERIAL HYPERTENSION
     Dosage: 10 MG, QD
     Route: 048
     Dates: start: 20160208, end: 20200123
  6. ATROPINE. [Concomitant]
     Active Substance: ATROPINE
     Dosage: UNK
     Dates: start: 20200116, end: 20200123
  7. ADEMPAS [Concomitant]
     Active Substance: RIOCIGUAT
     Indication: PULMONARY ARTERIAL HYPERTENSION
     Dosage: 1.5 MG, TID
     Dates: start: 20190813
  8. DIGOXIN. [Concomitant]
     Active Substance: DIGOXIN
     Dosage: 125 MCG, QD
     Dates: start: 20170825, end: 20200123
  9. UPTRAVI [Suspect]
     Active Substance: SELEXIPAG
     Indication: PULMONARY ARTERIAL HYPERTENSION
     Dosage: 1600 MCG, BID
     Route: 048
     Dates: start: 201807, end: 20200123
  10. KCL [Concomitant]
     Active Substance: POTASSIUM CHLORIDE
     Dosage: 40 MEQ, BID
     Dates: start: 20180119, end: 20200123
  11. METHAMPHETAMINE [Suspect]
     Active Substance: METHAMPHETAMINE
     Indication: PRODUCT USED FOR UNKNOWN INDICATION
     Route: 065
  12. SPIRONOLACTONE. [Concomitant]
     Active Substance: SPIRONOLACTONE
     Dosage: 50 MG QAM/25 MG QPM
  13. BISACODYL. [Concomitant]
     Active Substance: BISACODYL
     Dosage: 10 MG, PRN
     Route: 054
     Dates: start: 20200116, end: 20200123
  14. APAP [Concomitant]
     Active Substance: ACETAMINOPHEN
     Dosage: 650 MG
     Dates: start: 20200115, end: 20200123

REACTIONS (15)
  - Oedema [Recovering/Resolving]
  - Fluid retention [Recovering/Resolving]
  - Diet noncompliance [Not Recovered/Not Resolved]
  - Urine output decreased [Not Recovered/Not Resolved]
  - Drug abuse [Not Recovered/Not Resolved]
  - Death [Fatal]
  - Hypotension [Unknown]
  - Adverse event [Unknown]
  - Right ventricular failure [Not Recovered/Not Resolved]
  - Oedema peripheral [Recovering/Resolving]
  - Fatigue [Unknown]
  - Nephropathy [Unknown]
  - Chronic kidney disease [Unknown]
  - Cardiac failure chronic [Not Recovered/Not Resolved]
  - Hyponatraemia [Recovering/Resolving]

NARRATIVE: CASE EVENT DATE: 20191112
